FAERS Safety Report 9226421 (Version 1)
Quarter: 2013Q2

REPORT INFORMATION
  Report Type: Spontaneous
  Country: BR (occurrence: BR)
  Receive Date: 20130411
  Receipt Date: 20130411
  Transmission Date: 20140414
  Serious: Yes (Other)
  Sender: FDA-Public Use
  Company Number: BR-BAXTER-2013BAX012877

PATIENT
  Age: 3 Month
  Sex: Female

DRUGS (17)
  1. ENDOBULIN KIOVIG [Suspect]
     Indication: KAWASAKI^S DISEASE
     Dosage: 2 G/KG/DOSE
     Route: 042
  2. ENDOBULIN KIOVIG [Suspect]
  3. ACETYLSALICYLIC ACID [Concomitant]
     Indication: KAWASAKI^S DISEASE
     Dosage: IN DIVIDED DOSES
     Route: 065
  4. ACETYLSALICYLIC ACID [Concomitant]
  5. METHYLPREDNISOLONE [Concomitant]
     Indication: PRODUCT USED FOR UNKNOWN INDICATION
     Route: 042
  6. METHYLPREDNISOLONE [Concomitant]
     Route: 042
  7. PREDNISOLONE [Concomitant]
     Indication: PRODUCT USED FOR UNKNOWN INDICATION
  8. PREDNISOLONE [Concomitant]
  9. CLOPIDOGREL [Concomitant]
     Indication: PRODUCT USED FOR UNKNOWN INDICATION
  10. METHOTREXATE [Concomitant]
     Indication: PRODUCT USED FOR UNKNOWN INDICATION
     Route: 048
  11. ETANERCEPT [Concomitant]
     Indication: PRODUCT USED FOR UNKNOWN INDICATION
     Route: 058
  12. CEFTRIAXONE [Concomitant]
     Indication: PRODUCT USED FOR UNKNOWN INDICATION
     Route: 042
  13. CEFEPIME [Concomitant]
     Indication: PRODUCT USED FOR UNKNOWN INDICATION
     Route: 042
  14. VANCOMYCIN [Concomitant]
     Indication: PRODUCT USED FOR UNKNOWN INDICATION
     Route: 042
  15. DOPAMINE [Concomitant]
     Indication: PRODUCT USED FOR UNKNOWN INDICATION
     Route: 065
  16. ENOXAPARIN [Concomitant]
     Indication: ANTICOAGULANT THERAPY
     Route: 065
  17. ALPROSTADIL [Concomitant]
     Indication: PRODUCT USED FOR UNKNOWN INDICATION
     Route: 042

REACTIONS (1)
  - Drug ineffective [Not Recovered/Not Resolved]
